FAERS Safety Report 9319009 (Version 1)
Quarter: 2013Q2

REPORT INFORMATION
  Report Type: Spontaneous
  Country: US (occurrence: US)
  Receive Date: 20130530
  Receipt Date: 20130530
  Transmission Date: 20140414
  Serious: No
  Sender: FDA-Public Use
  Company Number: US-NOVEN-13US005985

PATIENT
  Age: 7 Year
  Sex: Female

DRUGS (2)
  1. DAYTRANA [Suspect]
     Indication: AUTISM
     Dosage: 15 MG, UNK
     Route: 062
     Dates: start: 201301
  2. DAYTRANA [Suspect]
     Dosage: 10 MG, UNK
     Route: 062
     Dates: start: 201212, end: 201301

REACTIONS (5)
  - Application site erythema [Not Recovered/Not Resolved]
  - Application site rash [Not Recovered/Not Resolved]
  - Drug prescribing error [Not Recovered/Not Resolved]
  - Wrong technique in drug usage process [Unknown]
  - Off label use [Not Recovered/Not Resolved]
